FAERS Safety Report 13344755 (Version 1)
Quarter: 2017Q1

REPORT INFORMATION
  Report Type: Spontaneous
  Country: FR (occurrence: FR)
  Receive Date: 20170317
  Receipt Date: 20170317
  Transmission Date: 20170428
  Serious: Yes (Hospitalization)
  Sender: FDA-Public Use
  Company Number: FR-009507513-1703FRA006739

PATIENT
  Age: 57 Year
  Sex: Female

DRUGS (3)
  1. KEYTRUDA [Suspect]
     Active Substance: PEMBROLIZUMAB
     Indication: MALIGNANT MELANOMA
     Dosage: CYCLE 1
     Route: 051
     Dates: start: 20160823, end: 20161206
  2. YERVOY [Suspect]
     Active Substance: IPILIMUMAB
     Indication: MALIGNANT MELANOMA
     Dosage: CYCLE 1, FORMULATION : SOLUTION TO BE DILUTED FOR INFUSION
     Route: 051
     Dates: start: 20161208
  3. YERVOY [Suspect]
     Active Substance: IPILIMUMAB
     Dosage: CYCLE 2
     Route: 051
     Dates: start: 20161227

REACTIONS (3)
  - Hepatocellular injury [Recovering/Resolving]
  - Pruritus [Not Recovered/Not Resolved]
  - Thyroiditis [Unknown]

NARRATIVE: CASE EVENT DATE: 20170113
